FAERS Safety Report 7418044-4 (Version None)
Quarter: 2011Q2

REPORT INFORMATION
  Report Type: 
  Country: None (occurrence: None)
  Receive Date: 20110415
  Receipt Date: 20110414
  Transmission Date: 20111010
  Serious: Yes (Other)
  Sender: FDA-Public Use
  Company Number: US-ABBOTT-11P-163-0710118-00

PATIENT
  Sex: Female
  Weight: 79.45 kg

DRUGS (4)
  1. HUMIRA [Suspect]
     Route: 058
     Dates: start: 20090101, end: 20101201
  2. HUMIRA [Suspect]
     Indication: RHEUMATOID ARTHRITIS
     Route: 058
     Dates: start: 20070201, end: 20090101
  3. HUMIRA [Suspect]
     Route: 058
     Dates: start: 20090101, end: 20090101
  4. HUMIRA [Suspect]

REACTIONS (10)
  - VULVOVAGINAL PRURITUS [None]
  - INCONTINENCE [None]
  - BRONCHITIS [None]
  - OSTEOARTHRITIS [None]
  - URINARY TRACT INFECTION [None]
  - MICTURITION URGENCY [None]
  - URINARY TRACT INFECTION BACTERIAL [None]
  - DRUG INEFFECTIVE [None]
  - DYSURIA [None]
  - ARTHRALGIA [None]
